FAERS Safety Report 6475076-0 (Version None)
Quarter: 2009Q4

REPORT INFORMATION
  Report Type: 
  Country: None (occurrence: None)
  Receive Date: 20091204
  Receipt Date: 20090429
  Transmission Date: 20100525
  Serious: Yes (Death, Hospitalization)
  Sender: FDA-Public Use
  Company Number: DE-ELI_LILLY_AND_COMPANY-DE200903002933

PATIENT
  Sex: Male

DRUGS (11)
  1. BYETTA [Suspect]
     Indication: TYPE 2 DIABETES MELLITUS
     Dosage: 10 D/F, UNK
     Route: 058
  2. HYDROCHLOROTHIAZIDE [Concomitant]
     Indication: HYPERTENSION
     Dosage: 25 D/F, UNKNOWN
     Route: 065
  3. AMLODIPINE [Concomitant]
     Indication: HYPERTENSION
     Dosage: 5 MG, UNK
  4. DELIX [Concomitant]
     Indication: HYPERTENSION
     Dosage: 5 MG, UNK
  5. PROTAPHANE NOVOLET /00646001/ [Concomitant]
     Dosage: 15 ML, (5 X 3ML) UNK
     Dates: start: 20071012
  6. PROTAPHANE NOVOLET /00646001/ [Concomitant]
     Dosage: 30 ML (10 X 3ML), UNK
     Dates: start: 20071115
  7. ISCOVER [Concomitant]
     Dates: start: 20071012
  8. TRIAMTEREN [Concomitant]
     Dosage: UNK, UNKNOWN
     Route: 065
     Dates: start: 20071012
  9. NOVONORM [Concomitant]
     Dates: start: 20071012
  10. ASPIRIN [Concomitant]
     Dosage: 100 D/F, UNKNOWN
     Route: 065
     Dates: start: 20071012
  11. ACTRAPID INSULIN NOVO [Concomitant]
     Dosage: 30 ML ( 10 X 3ML), UNK
     Dates: start: 20071115

REACTIONS (5)
  - ABDOMINAL PAIN [None]
  - DEATH [None]
  - GASTRODUODENITIS [None]
  - HOSPITALISATION [None]
  - IRON DEFICIENCY ANAEMIA [None]
